FAERS Safety Report 14173005 (Version 1)
Quarter: 2017Q4

REPORT INFORMATION
  Report Type: Spontaneous
  Country: US (occurrence: None)
  Receive Date: 20171108
  Receipt Date: 20171108
  Transmission Date: 20180321
  Serious: No
  Sender: FDA-Public Use
  Company Number: None

PATIENT
  Age: 83 Year
  Sex: Female

DRUGS (1)
  1. IBRANCE [Suspect]
     Active Substance: PALBOCICLIB
     Dosage: 100 MG QD FOR 21 DAYS ORAL
     Route: 048
     Dates: start: 20170930

REACTIONS (7)
  - Procedural site reaction [None]
  - Chills [None]
  - Insomnia [None]
  - Abdominal distension [None]
  - Oedema peripheral [None]
  - Decreased appetite [None]
  - Pruritus [None]

NARRATIVE: CASE EVENT DATE: 20171106
